FAERS Safety Report 15670704 (Version 2)
Quarter: 2019Q1

REPORT INFORMATION
  Report Type: Spontaneous
  Country: US (occurrence: US)
  Receive Date: 20181129
  Receipt Date: 20190107
  Transmission Date: 20190417
  Serious: Yes (Other)
  Sender: FDA-Public Use
  Company Number: US-JNJFOC-20181113772

PATIENT
  Sex: Male

DRUGS (6)
  1. ZYTIGA [Suspect]
     Active Substance: ABIRATERONE ACETATE
     Indication: PROSTATE CANCER STAGE IV
     Route: 048
     Dates: start: 20180102, end: 20180813
  2. VITAMIN D2 [Concomitant]
     Active Substance: ERGOCALCIFEROL
     Indication: PRODUCT USED FOR UNKNOWN INDICATION
     Route: 065
     Dates: start: 2018
  3. TRAZODONE [Concomitant]
     Active Substance: TRAZODONE HYDROCHLORIDE
     Indication: INSOMNIA
     Route: 048
     Dates: start: 201810
  4. LUPRON [Concomitant]
     Active Substance: LEUPROLIDE ACETATE
     Indication: PROSTATE CANCER
     Route: 030
  5. ALLOPURINOL. [Concomitant]
     Active Substance: ALLOPURINOL
     Indication: GOUT
     Route: 048
     Dates: start: 2013
  6. ERLEADA [Suspect]
     Active Substance: APALUTAMIDE
     Indication: PROSTATE CANCER STAGE IV
     Route: 048
     Dates: start: 20180814, end: 20181111

REACTIONS (6)
  - Therapeutic response decreased [Unknown]
  - Peripheral swelling [Not Recovered/Not Resolved]
  - Asthenia [Not Recovered/Not Resolved]
  - Weight increased [Not Recovered/Not Resolved]
  - Prostatic specific antigen abnormal [Unknown]
  - Fatigue [Not Recovered/Not Resolved]

NARRATIVE: CASE EVENT DATE: 2018
